FAERS Safety Report 8777356 (Version 1)
Quarter: 2012Q4

REPORT INFORMATION
  Report Type: 
  Country: JP (occurrence: JP)
  Receive Date: 20120911
  Receipt Date: 20120911
  Transmission Date: 20130627
  Serious: Yes (Other)
  Sender: FDA-Public Use
  Company Number: JP-PFIZER INC-2012221595

PATIENT
  Age: 9 None
  Sex: Male

DRUGS (3)
  1. JZOLOFT [Suspect]
     Dosage: UNK
     Route: 048
  2. JZOLOFT [Suspect]
     Dosage: UNK, 1x/day (at night)
     Route: 048
     Dates: end: 20120903
  3. SULPIRIDE [Concomitant]
     Dosage: UNK, 3x/day (morning, noon and evening)

REACTIONS (6)
  - Depressed level of consciousness [Unknown]
  - Akinesia [Unknown]
  - Dysphagia [Unknown]
  - Feeling abnormal [Unknown]
  - Mutism [Unknown]
  - Decreased appetite [Unknown]
